FAERS Safety Report 8026398-3 (Version None)
Quarter: 2012Q1

REPORT INFORMATION
  Report Type: 
  Country: None (occurrence: None)
  Receive Date: 20120105
  Receipt Date: 20111229
  Transmission Date: 20120608
  Serious: Yes (Death, Life-Threatening, Hospitalization)
  Sender: FDA-Public Use
  Company Number: US-RB-036044-12

PATIENT
  Age: 14 Year
  Sex: Female

DRUGS (4)
  1. METHAMPHETAMINE [Suspect]
     Indication: PRODUCT USED FOR UNKNOWN INDICATION
     Dosage: DOSING DETAILS UNKNOWN
     Route: 065
     Dates: start: 20111201
  2. SUBOXONE [Suspect]
     Indication: PRODUCT USED FOR UNKNOWN INDICATION
     Dosage: UNKNOWN DOSING REGIMEN
     Route: 065
     Dates: start: 20111223, end: 20111223
  3. HEROIN [Suspect]
     Indication: PRODUCT USED FOR UNKNOWN INDICATION
     Dosage: UNKNOWN DOSING REGIMEN
     Route: 042
     Dates: start: 20111222, end: 20111222
  4. COCAINE [Suspect]
     Indication: PRODUCT USED FOR UNKNOWN INDICATION
     Dosage: DRUG INFORMATION UNKNOWN

REACTIONS (4)
  - CONVULSION [None]
  - BRAIN INJURY [None]
  - TOXICITY TO VARIOUS AGENTS [None]
  - HEART INJURY [None]
